FAERS Safety Report 8037449-4 (Version None)
Quarter: 2012Q1

REPORT INFORMATION
  Report Type: 
  Country: None (occurrence: None)
  Receive Date: 20120111
  Receipt Date: 20120105
  Transmission Date: 20120608
  Serious: Yes (Other)
  Sender: FDA-Public Use
  Company Number: US-PFIZER INC-2012004583

PATIENT
  Sex: Female

DRUGS (2)
  1. PRISTIQ [Suspect]
     Dosage: UNK
  2. TAMOXIFEN [Concomitant]
     Indication: BREAST CANCER FEMALE
     Dosage: UNK

REACTIONS (1)
  - BONE DENSITY DECREASED [None]
